FAERS Safety Report 9894379 (Version 1)
Quarter: 2014Q1

REPORT INFORMATION
  Report Type: Spontaneous
  Country: JP (occurrence: JP)
  Receive Date: 20140213
  Receipt Date: 20140213
  Transmission Date: 20141002
  Serious: Yes (Hospitalization)
  Sender: FDA-Public Use
  Company Number: JP-TEVA-460951ISR

PATIENT
  Age: 56 Year
  Sex: Female
  Weight: 39 kg

DRUGS (4)
  1. CISPLATIN [Suspect]
     Indication: OESOPHAGEAL SQUAMOUS CELL CARCINOMA STAGE IV
     Route: 065
     Dates: start: 201101
  2. DOCETAXEL [Suspect]
     Indication: OESOPHAGEAL SQUAMOUS CELL CARCINOMA STAGE IV
     Route: 065
     Dates: start: 201108
  3. FLUOROURACIL [Suspect]
     Indication: OESOPHAGEAL SQUAMOUS CELL CARCINOMA STAGE IV
     Route: 065
     Dates: start: 201101
  4. NEDAPLATIN [Suspect]
     Indication: OESOPHAGEAL SQUAMOUS CELL CARCINOMA STAGE IV
     Route: 065
     Dates: start: 201108

REACTIONS (4)
  - Cardiac tamponade [Recovering/Resolving]
  - Purulent pericarditis [Recovering/Resolving]
  - Oesophageal fistula [Not Recovered/Not Resolved]
  - Pericardial disease [Not Recovered/Not Resolved]
